FAERS Safety Report 12416766 (Version 2)
Quarter: 2016Q3

REPORT INFORMATION
  Report Type: Spontaneous
  Country: US (occurrence: US)
  Receive Date: 20160530
  Receipt Date: 20160706
  Transmission Date: 20161109
  Serious: Yes (Disabling)
  Sender: FDA-Public Use
  Company Number: US-WEST-WARD PHARMACEUTICALS CORP.-US-H14001-15-01685

PATIENT
  Sex: Male
  Weight: 84.9 kg

DRUGS (3)
  1. DOXEPIN [Concomitant]
     Active Substance: DOXEPIN
     Indication: INSOMNIA
     Route: 065
  2. TESTOSTERONE CYPIONATE. [Suspect]
     Active Substance: TESTOSTERONE CYPIONATE
     Indication: BLOOD TESTOSTERONE DECREASED
     Route: 030
     Dates: start: 201505, end: 2015
  3. TESTOSTERONE CYPIONATE. [Suspect]
     Active Substance: TESTOSTERONE CYPIONATE
     Indication: HYPOGONADISM
     Route: 030
     Dates: start: 201505

REACTIONS (7)
  - Hirsutism [Not Recovered/Not Resolved]
  - Acne cystic [Not Recovered/Not Resolved]
  - Alopecia [Unknown]
  - Hormone level abnormal [Unknown]
  - Weight decreased [Unknown]
  - Asthenia [Unknown]
  - Sleep disorder [Unknown]

NARRATIVE: CASE EVENT DATE: 2015
